FAERS Safety Report 13384410 (Version 2)
Quarter: 2017Q2

REPORT INFORMATION
  Report Type: Report from Study
  Country: US (occurrence: US)
  Receive Date: 20170329
  Receipt Date: 20170526
  Transmission Date: 20170830
  Serious: Yes (Hospitalization, Other)
  Sender: FDA-Public Use
  Company Number: US-BRISTOL-MYERS SQUIBB COMPANY-BMS-2017-024587

PATIENT
  Age: 62 Year
  Sex: Male
  Weight: 95.69 kg

DRUGS (15)
  1. FERROUS GLUCONATE [Concomitant]
     Active Substance: FERROUS GLUCONATE
     Indication: MINERAL SUPPLEMENTATION
     Dosage: 325 MG, BID
     Route: 048
     Dates: start: 20160714, end: 20160902
  2. MYCOPHENOLATE MOFETIL. [Concomitant]
     Active Substance: MYCOPHENOLATE MOFETIL
     Indication: IMMUNOSUPPRESSION
     Dosage: 500 MG, BID
     Route: 048
     Dates: start: 20160623, end: 20160808
  3. SIMVASTATIN. [Concomitant]
     Active Substance: SIMVASTATIN
     Indication: HYPERLIPIDAEMIA
     Dosage: 5 MG, UNK
     Route: 048
     Dates: start: 20140916
  4. CLOTRIMAZOLE. [Concomitant]
     Active Substance: CLOTRIMAZOLE
     Indication: INFECTION PROPHYLAXIS
     Dosage: 10 MG, BID
     Route: 048
     Dates: start: 20160623, end: 20160808
  5. ASPIRIN                            /00002701/ [Concomitant]
     Active Substance: ASPIRIN
     Indication: CEREBROVASCULAR ACCIDENT PROPHYLAXIS
     Dosage: 81 MG, UNK
     Route: 048
     Dates: start: 20100223
  6. CLONAZEPAM. [Concomitant]
     Active Substance: CLONAZEPAM
     Indication: ANXIETY
     Dosage: 0.5 MG, TID
     Route: 048
     Dates: start: 20100223
  7. PREDNISONE. [Concomitant]
     Active Substance: PREDNISONE
     Indication: IMMUNOSUPPRESSION
     Dosage: 5 MG, TID
     Route: 048
     Dates: start: 20160624
  8. VALGANCICLOVIR. [Concomitant]
     Active Substance: VALGANCICLOVIR
     Indication: INFECTION PROPHYLAXIS
     Dosage: 450 MG, UNK
     Route: 048
     Dates: start: 20160623
  9. ZIPRASIDONE. [Concomitant]
     Active Substance: ZIPRASIDONE
     Indication: BIPOLAR DISORDER
     Dosage: 60 MG, BID
     Route: 048
     Dates: start: 20140703
  10. DIVALPROEX [Concomitant]
     Active Substance: DIVALPROEX SODIUM
     Indication: BIPOLAR DISORDER
     Dosage: 500 MG, UNK
     Route: 048
     Dates: start: 20100223
  11. BACTRIM [Concomitant]
     Active Substance: SULFAMETHOXAZOLE\TRIMETHOPRIM
     Indication: INFECTION PROPHYLAXIS
     Dosage: UNK
     Route: 048
     Dates: start: 20160623
  12. BELATACEPT [Suspect]
     Active Substance: BELATACEPT
     Indication: PROGRESSIVE MULTIFOCAL LEUKOENCEPHALOPATHY
     Dosage: 680 MG, UNK
     Route: 042
     Dates: start: 20160623, end: 20160721
  13. BUSPIRONE [Concomitant]
     Active Substance: BUSPIRONE HYDROCHLORIDE
     Indication: ANXIETY
     Dosage: 20 MG, BID
     Route: 048
     Dates: start: 20100223
  14. TAMSULOSIN [Concomitant]
     Active Substance: TAMSULOSIN
     Indication: BENIGN PROSTATIC HYPERPLASIA
     Dosage: 0.4 MG, UNK
     Route: 048
     Dates: start: 20160623, end: 20160808
  15. FUROSEMIDE. [Concomitant]
     Active Substance: FUROSEMIDE
     Indication: HYPOVOLAEMIA
     Dosage: 40 MG, QOD
     Route: 065
     Dates: start: 20160720, end: 20160805

REACTIONS (4)
  - Renal vein thrombosis [Unknown]
  - Graft loss [Recovered/Resolved]
  - Packed red blood cell transfusion [Unknown]
  - Haemodialysis [Unknown]

NARRATIVE: CASE EVENT DATE: 20160805
